FAERS Safety Report 20564549 (Version 2)
Quarter: 2022Q2

REPORT INFORMATION
  Report Type: Spontaneous
  Country: CO (occurrence: CO)
  Receive Date: 20220308
  Receipt Date: 20220411
  Transmission Date: 20220721
  Serious: Yes (Other)
  Sender: FDA-Public Use
  Company Number: CO-PFIZER INC-202200322091

PATIENT
  Age: 62 Year
  Sex: Female

DRUGS (2)
  1. ENBREL [Suspect]
     Active Substance: ETANERCEPT
     Indication: Rheumatoid arthritis
     Dosage: 50 MILLIGRAM, QWK
     Route: 058
  2. ENBREL [Suspect]
     Active Substance: ETANERCEPT
     Dosage: 50 MILLIGRAM, QMO
     Route: 058

REACTIONS (9)
  - Ulcer [Recovered/Resolved]
  - Iritis [Recovering/Resolving]
  - Retinitis [Recovering/Resolving]
  - Keratitis [Recovering/Resolving]
  - Off label use [Unknown]
  - Photosensitivity reaction [Unknown]
  - Illness [Recovered/Resolved]
  - Eye pain [Unknown]
  - Pyrexia [Recovered/Resolved]

NARRATIVE: CASE EVENT DATE: 20210801
